FAERS Safety Report 19244594 (Version 9)
Quarter: 2023Q2

REPORT INFORMATION
  Report Type: Report from Study
  Country: CA (occurrence: CA)
  Receive Date: 20210511
  Receipt Date: 20230405
  Transmission Date: 20230722
  Serious: Yes (Hospitalization, Other)
  Sender: FDA-Public Use
  Company Number: CA-TAKEDA-2021TUS029378

PATIENT
  Age: 60 Year
  Sex: Female

DRUGS (13)
  1. VEDOLIZUMAB [Suspect]
     Active Substance: VEDOLIZUMAB
     Indication: Crohn^s disease
     Dosage: 300 MILLIGRAM
     Route: 042
     Dates: start: 20210126
  2. VEDOLIZUMAB [Suspect]
     Active Substance: VEDOLIZUMAB
     Dosage: 300 MILLIGRAM
     Route: 042
  3. VEDOLIZUMAB [Suspect]
     Active Substance: VEDOLIZUMAB
     Dosage: 300 MILLIGRAM
     Route: 042
  4. Salofalk [Concomitant]
     Dosage: UNK UNK, BID
  5. SYNTHROID [Concomitant]
     Active Substance: LEVOTHYROXINE SODIUM
     Dosage: 50 MICROGRAM, QD
     Route: 048
  6. MOMETASONE [Concomitant]
     Active Substance: MOMETASONE
     Dosage: UNK
  7. Panto [Concomitant]
     Dosage: 40 MILLIGRAM, QD
     Route: 048
  8. BETADERM [Concomitant]
     Active Substance: BETAMETHASONE VALERATE
     Dosage: UNK
  9. OMEGA 3 [Concomitant]
     Active Substance: CAPSAICIN
     Dosage: UNK UNK, QD
  10. ASPIRIN [Concomitant]
     Active Substance: ASPIRIN
     Dosage: 81 MILLIGRAM, QD
     Route: 048
  11. VITAMIN D NOS [Concomitant]
     Active Substance: VITAMIN D NOS
     Dosage: UNK UNK, QD
  12. VITAMIN C [Concomitant]
     Active Substance: ASCORBIC ACID
     Dosage: UNK UNK, QD
  13. IRON [Concomitant]
     Active Substance: IRON
     Dosage: UNK

REACTIONS (9)
  - Ovarian cyst [Unknown]
  - Abdominal pain [Unknown]
  - Vomiting [Unknown]
  - Back pain [Unknown]
  - Crohn^s disease [Recovered/Resolved]
  - Therapeutic reaction time decreased [Unknown]
  - Breath odour [Unknown]
  - Drug level decreased [Unknown]
  - Eczema [Unknown]

NARRATIVE: CASE EVENT DATE: 20210401
